FAERS Safety Report 9020910 (Version 1)
Quarter: 2013Q1

REPORT INFORMATION
  Report Type: Spontaneous
  Country: US (occurrence: US)
  Receive Date: 20130119
  Receipt Date: 20130119
  Transmission Date: 20140127
  Serious: No
  Sender: FDA-Public Use
  Company Number: US-ALLERGAN-1205297US

PATIENT
  Age: 53 Year
  Sex: Female

DRUGS (4)
  1. BOTOX? [Suspect]
     Indication: URINARY INCONTINENCE
     Dosage: 30 UNITS, SINGLE
     Route: 030
     Dates: start: 201111, end: 201111
  2. KEPPRA [Concomitant]
     Indication: CONVULSION
     Dosage: 750 MG, UNK
     Route: 048
  3. COPAXONE                           /01410902/ [Concomitant]
     Indication: MULTIPLE SCLEROSIS
  4. MULTIVITAMINS [Concomitant]
     Indication: SUPPLEMENTATION THERAPY

REACTIONS (1)
  - Oral candidiasis [Not Recovered/Not Resolved]
